FAERS Safety Report 24823345 (Version 2)
Quarter: 2025Q3

REPORT INFORMATION
  Report Type: Report from Study
  Country: US (occurrence: US)
  Receive Date: 20250109
  Receipt Date: 20250729
  Transmission Date: 20251020
  Serious: Yes (Hospitalization, Other)
  Sender: ABBVIE
  Company Number: US-ABBVIE-6074709

PATIENT
  Sex: Female

DRUGS (3)
  1. IMBRUVICA [Suspect]
     Active Substance: IBRUTINIB
     Indication: Chronic lymphocytic leukaemia
     Route: 048
     Dates: start: 202209
  2. IMBRUVICA [Suspect]
     Active Substance: IBRUTINIB
     Indication: Chronic lymphocytic leukaemia
     Route: 048
     Dates: start: 20201113
  3. AVASTIN [Suspect]
     Active Substance: BEVACIZUMAB
     Indication: Product used for unknown indication
     Dosage: INJECTION
     Route: 050

REACTIONS (21)
  - Macular degeneration [Unknown]
  - Skin cancer [Unknown]
  - Contusion [Unknown]
  - Arthralgia [Unknown]
  - Raynaud^s phenomenon [Unknown]
  - Neuropathy peripheral [Unknown]
  - Pneumonia [Unknown]
  - Platelet count decreased [Unknown]
  - Blister [Unknown]
  - Bone pain [Unknown]
  - Seasonal allergy [Unknown]
  - Sinus disorder [Unknown]
  - Rash [Unknown]
  - Skin laceration [Unknown]
  - Temperature intolerance [Unknown]
  - Myalgia [Unknown]
  - Dry mouth [Unknown]
  - Stomatitis [Unknown]
  - Retinal haemorrhage [Unknown]
  - Feeling abnormal [Unknown]
  - Cognitive disorder [Unknown]
